FAERS Safety Report 20071558 (Version 2)
Quarter: 2021Q4

REPORT INFORMATION
  Report Type: Report from Study
  Country: US (occurrence: US)
  Receive Date: 20211115
  Receipt Date: 20211118
  Transmission Date: 20220303
  Serious: Yes (Hospitalization)
  Sender: FDA-Public Use
  Company Number: US-ABBVIE-21K-163-4156973-00

PATIENT
  Age: 94 Year
  Sex: Female
  Weight: 68.6 kg

DRUGS (12)
  1. IMBRUVICA [Suspect]
     Active Substance: IBRUTINIB
     Indication: Lymphoma
     Route: 048
     Dates: start: 20190327, end: 20200421
  2. IMBRUVICA [Suspect]
     Active Substance: IBRUTINIB
     Route: 048
     Dates: start: 20200429
  3. ACETAMINOPHEN [Concomitant]
     Active Substance: ACETAMINOPHEN
     Indication: Rheumatoid arthritis
     Dosage: BY MOUTH 2 TIMES DAILY
     Route: 048
     Dates: start: 20190311
  4. ACETAMINOPHEN [Concomitant]
     Active Substance: ACETAMINOPHEN
     Indication: Pyrexia
  5. ACETAMINOPHEN [Concomitant]
     Active Substance: ACETAMINOPHEN
     Indication: Pain
  6. AMLODIPINE [Concomitant]
     Active Substance: AMLODIPINE BESYLATE
     Indication: Hypertension
     Dosage: TAKE 1 TABLET BY MOUTH DAILY.
     Route: 048
     Dates: start: 20190312
  7. APIXABAN [Concomitant]
     Active Substance: APIXABAN
     Indication: Cerebrovascular accident
     Dosage: 1 TABLET BY MOUTH 2 TIMES DAILY
     Route: 048
     Dates: start: 20190311
  8. ASPIRIN [Concomitant]
     Active Substance: ASPIRIN
     Indication: Myocardial infarction
     Dosage: TAKE 81 MG BY MOUTH DAILY.
     Dates: start: 20190305
  9. CARVEDILOL [Concomitant]
     Active Substance: CARVEDILOL
     Indication: Cerebrovascular accident
     Dosage: 12.5 MG TABLET TAKE 1 TABLET BY MOUTH 2 TIMES DAILY WITH BREAKFAST AND DINNER
     Route: 048
     Dates: start: 20190228
  10. CYANOCOBALAMIN [Concomitant]
     Active Substance: CYANOCOBALAMIN
     Indication: Anaemia
     Dosage: TAKE 1,000 MCG BY MOUTH DAILY.
     Dates: start: 20190130
  11. DOCUSATE SODIUM [Concomitant]
     Active Substance: DOCUSATE SODIUM
     Indication: Constipation
     Dosage: 100 MG CAPSULE TAKE 100 MG BY MOUTH 2 TIMES DAILY.
     Route: 048
     Dates: start: 20190311
  12. FOLIC ACID [Concomitant]
     Active Substance: FOLIC ACID
     Indication: Anaemia
     Dosage: TAKE 1 MG BY MOUTH DAILY
     Route: 048
     Dates: start: 20190130

REACTIONS (1)
  - Hip fracture [Recovered/Resolved with Sequelae]

NARRATIVE: CASE EVENT DATE: 20200421
